FAERS Safety Report 24963822 (Version 1)
Quarter: 2025Q1

REPORT INFORMATION
  Report Type: Report from Study
  Country: CA (occurrence: CA)
  Receive Date: 20250213
  Receipt Date: 20250213
  Transmission Date: 20250409
  Serious: Yes (Other)
  Sender: BIOCON
  Company Number: CA-BIOCON BIOLOGICS LIMITED-BBL2024005884

PATIENT

DRUGS (1)
  1. HULIO [Suspect]
     Active Substance: ADALIMUMAB-FKJP
     Indication: Ankylosing spondylitis
     Dosage: 40 MILLIGRAM, Q2W
     Route: 058
     Dates: start: 20240919

REACTIONS (9)
  - Fall [Unknown]
  - Breast pain [Unknown]
  - Contusion [Unknown]
  - Arthralgia [Unknown]
  - Dyspnoea [Unknown]
  - Musculoskeletal chest pain [Unknown]
  - Back pain [Unknown]
  - Limb discomfort [Unknown]
  - Dizziness [Unknown]
